FAERS Safety Report 20332115 (Version 2)
Quarter: 2022Q1

REPORT INFORMATION
  Report Type: Spontaneous
  Country: FR (occurrence: None)
  Receive Date: 20220113
  Receipt Date: 20220203
  Transmission Date: 20220423
  Serious: Yes (Other)
  Sender: FDA-Public Use
  Company Number: 2022A014977

PATIENT
  Age: 23681 Day
  Sex: Male
  Weight: 135 kg

DRUGS (9)
  1. DAPAGLIFLOZIN [Suspect]
     Active Substance: DAPAGLIFLOZIN
     Indication: Type 2 diabetes mellitus
     Route: 048
     Dates: start: 20211008, end: 20211210
  2. DAPAGLIFLOZIN [Suspect]
     Active Substance: DAPAGLIFLOZIN
     Indication: Cardiac failure
     Route: 048
     Dates: start: 20211008, end: 20211210
  3. EUPRESSYL SR [Concomitant]
  4. LERCANIDIPINE [Concomitant]
     Active Substance: LERCANIDIPINE
  5. BIPRETAX [Concomitant]
     Dosage: 10 MG/ 2.5 MG
  6. KARDEGIC [Concomitant]
     Active Substance: ASPIRIN DL-LYSINE
     Dosage: 160 MG
  7. FEBUXOSTAT [Concomitant]
     Active Substance: FEBUXOSTAT
     Dosage: 120 MG ARROW
  8. FIASP [Concomitant]
     Active Substance: INSULIN ASPART
  9. TOUJEO [Concomitant]
     Active Substance: INSULIN GLARGINE

REACTIONS (5)
  - Renal impairment [Unknown]
  - Blood uric acid increased [Not Recovered/Not Resolved]
  - Muscle spasms [Unknown]
  - Gait disturbance [Unknown]
  - Renal pain [Unknown]

NARRATIVE: CASE EVENT DATE: 20211009
